FAERS Safety Report 20911818 (Version 2)
Quarter: 2022Q3

REPORT INFORMATION
  Report Type: Spontaneous
  Country: US (occurrence: US)
  Receive Date: 20220603
  Receipt Date: 20220708
  Transmission Date: 20221027
  Serious: Yes (Death)
  Sender: FDA-Public Use
  Company Number: US-PFIZER INC-202200685619

PATIENT
  Age: 76 Year
  Sex: Male

DRUGS (2)
  1. VFEND [Suspect]
     Active Substance: VORICONAZOLE
     Indication: Metastases to lung
     Dosage: 200 MG (TAKE 1 TAB PO Q 12HRS)
     Route: 048
     Dates: end: 20220119
  2. VFEND [Suspect]
     Active Substance: VORICONAZOLE
     Indication: Salivary gland cancer

REACTIONS (2)
  - Sepsis [Fatal]
  - Off label use [Fatal]
